FAERS Safety Report 16441291 (Version 2)
Quarter: 2019Q3

REPORT INFORMATION
  Report Type: Spontaneous
  Country: US (occurrence: US)
  Receive Date: 20190617
  Receipt Date: 20190730
  Transmission Date: 20191004
  Serious: No
  Sender: FDA-Public Use
  Company Number: US-PFIZER INC-2019253712

PATIENT
  Age: 61 Year
  Sex: Female

DRUGS (1)
  1. LYRICA [Suspect]
     Active Substance: PREGABALIN
     Indication: NEUROPATHY PERIPHERAL
     Dosage: 900 MG, DAILY (LYRICA 300 MG CAPSULE / QTY 270 / DAY SUPPLY 90)

REACTIONS (3)
  - Osteoporosis [Unknown]
  - Nerve compression [Unknown]
  - Prescribed overdose [Unknown]
